FAERS Safety Report 4294566-2 (Version None)
Quarter: 2004Q1

REPORT INFORMATION
  Report Type: 
  Country: None (occurrence: None)
  Receive Date: 20040211
  Receipt Date: 20040130
  Transmission Date: 20041129
  Serious: Yes (Hospitalization)
  Sender: FDA-Public Use
  Company Number: MK200401-0338-2

PATIENT
  Sex: 0

DRUGS (6)
  1. ANAFRANIL CAP [Suspect]
     Dosage: TRANSPLACENTALLY
     Route: 064
  2. DIAZEPAM [Suspect]
     Dosage: TRANSPLACENTALLY
     Route: 064
  3. FLUNITRAZEPAM [Concomitant]
  4. HALOPERIDOL [Concomitant]
  5. HYDROXYZINE HCL [Concomitant]
  6. RITODRINE HCL [Concomitant]

REACTIONS (12)
  - APGAR SCORE LOW [None]
  - APNOEIC ATTACK [None]
  - CAESAREAN SECTION [None]
  - CLONUS [None]
  - DRUG WITHDRAWAL SYNDROME NEONATAL [None]
  - FEEDING PROBLEM IN NEWBORN [None]
  - HYPOTONIA NEONATAL [None]
  - MATERNAL DRUGS AFFECTING FOETUS [None]
  - NEONATAL ASPHYXIA [None]
  - NEONATAL DISORDER [None]
  - NEONATAL RESPIRATORY DEPRESSION [None]
  - PREMATURE BABY [None]
